FAERS Safety Report 5003973-1 (Version None)
Quarter: 2006Q2

REPORT INFORMATION
  Report Type: 
  Country: None (occurrence: None)
  Receive Date: 20060517
  Receipt Date: 20060116
  Transmission Date: 20061013
  Serious: Yes (Hospitalization)
  Sender: FDA-Public Use
  Company Number: FRWYE302316JAN06

PATIENT
  Age: 77 Year
  Sex: Female
  Weight: 70 kg

DRUGS (10)
  1. ENBREL [Suspect]
     Indication: PUSTULAR PSORIASIS
     Route: 058
     Dates: start: 20051230, end: 20060112
  2. GLUCOPHAGE [Concomitant]
  3. FENOFIBRATE [Concomitant]
  4. NISISCO [Concomitant]
  5. FOLIC ACID [Concomitant]
  6. ALLOPURINOL [Concomitant]
  7. HYPERIUM [Concomitant]
  8. COLCHIMAX [Concomitant]
  9. VALSARTAN + HYDROCHLOROTHIAZIDE [Concomitant]
  10. MAGNESIUM [Concomitant]

REACTIONS (4)
  - CONDITION AGGRAVATED [None]
  - ESCHERICHIA URINARY TRACT INFECTION [None]
  - PUSTULAR PSORIASIS [None]
  - SKIN INFECTION [None]
